FAERS Safety Report 8667861 (Version 3)
Quarter: 2012Q4

REPORT INFORMATION
  Report Type: 
  Country: CH (occurrence: CH)
  Receive Date: 20120717
  Receipt Date: 20120914
  Transmission Date: 20130627
  Serious: Yes (Hospitalization, Other)
  Sender: FDA-Public Use
  Company Number: CH-JNJFOC-20120703453

PATIENT
  Age: 80 Year
  Sex: Male
  Weight: 83 kg

DRUGS (9)
  1. ZYTIGA [Suspect]
     Indication: PROSTATE CANCER METASTATIC
     Route: 048
     Dates: start: 20120112, end: 20120704
  2. MORPHINE [Concomitant]
     Indication: METASTATIC PAIN
     Dosage: 30-0-20 mg
     Route: 048
  3. PREDNISONE [Concomitant]
     Indication: PROSTATE CANCER METASTATIC
     Dosage: 5-5-0 mg
     Route: 048
  4. ENALAPRIL [Concomitant]
     Indication: HYPERTENSION
     Route: 048
  5. AMIODARONE [Concomitant]
     Indication: ATRIAL FIBRILLATION
     Route: 048
  6. AMILORID HYDROCHLOROTHIAZIDE [Concomitant]
     Indication: HYPERTENSION
     Route: 048
  7. NADROPARIN [Concomitant]
     Route: 058
  8. AMLODIPINE [Concomitant]
     Indication: HYPERTENSION
     Route: 048
  9. MOLAXOLE [Concomitant]
     Indication: CONSTIPATION
     Route: 048

REACTIONS (5)
  - Dyspnoea [Recovered/Resolved]
  - Renal failure [Unknown]
  - Anaemia [Unknown]
  - Osteitis [Unknown]
  - Prostatic specific antigen increased [Not Recovered/Not Resolved]
